FAERS Safety Report 10560295 (Version 1)
Quarter: 2014Q4

REPORT INFORMATION
  Report Type: Spontaneous
  Country: US (occurrence: None)
  Receive Date: 20141031
  Receipt Date: 20141031
  Transmission Date: 20150529
  Serious: Yes (Hospitalization)
  Sender: FDA-Public Use
  Company Number: None

PATIENT
  Age: 78 Year
  Sex: Male
  Weight: 93 kg

DRUGS (1)
  1. GADODIAMIDE [Suspect]
     Active Substance: GADODIAMIDE
     Route: 042

REACTIONS (5)
  - Hyperhidrosis [None]
  - Dyspnoea [None]
  - Panic reaction [None]
  - Fatigue [None]
  - Abdominal pain upper [None]

NARRATIVE: CASE EVENT DATE: 20140424
